FAERS Safety Report 9413195 (Version 2)
Quarter: 2013Q3

REPORT INFORMATION
  Report Type: Spontaneous
  Country: US (occurrence: US)
  Receive Date: 20130722
  Receipt Date: 20130726
  Transmission Date: 20140515
  Serious: Yes (Other)
  Sender: FDA-Public Use
  Company Number: US-PFIZER INC-2013213412

PATIENT
  Age: 63 Year
  Sex: Female
  Weight: 109 kg

DRUGS (3)
  1. ADVIL [Suspect]
     Indication: FIBROMYALGIA
     Dosage: 6 CAPSULES, DAILY
  2. ADVIL [Suspect]
     Indication: PAIN IN EXTREMITY
     Dosage: 700-800 MG, DAILY
     Dates: start: 201307
  3. TYLENOL EXTRA-STRENGTH [Suspect]
     Indication: PAIN IN EXTREMITY
     Dosage: UNK
     Dates: start: 201307

REACTIONS (9)
  - Extra dose administered [Unknown]
  - Arthropathy [Unknown]
  - Feeling abnormal [Unknown]
  - Limb injury [Unknown]
  - Pain [Unknown]
  - Insomnia [Unknown]
  - Drug ineffective [Unknown]
  - Drug resistance [Unknown]
  - Psoriasis [Unknown]
